FAERS Safety Report 6237149-7 (Version None)
Quarter: 2009Q2

REPORT INFORMATION
  Report Type: 
  Country: None (occurrence: None)
  Receive Date: 20090619
  Receipt Date: 20090428
  Transmission Date: 20091009
  Serious: No
  Sender: FDA-Public Use
  Company Number: US-ASTRAZENECA-2009UW10640

PATIENT
  Sex: Female

DRUGS (1)
  1. SYMBICORT [Suspect]
     Indication: ASTHMA
     Dosage: 80 UG 2 PUFFS TWO TIMES A DAY
     Route: 055
     Dates: start: 20081101, end: 20081114

REACTIONS (3)
  - DRUG HYPERSENSITIVITY [None]
  - FEELING JITTERY [None]
  - TACHYCARDIA [None]
